FAERS Safety Report 10844462 (Version 1)
Quarter: 2015Q1

REPORT INFORMATION
  Report Type: Spontaneous
  Country: FR (occurrence: FR)
  Receive Date: 20150220
  Receipt Date: 20150220
  Transmission Date: 20150721
  Serious: Yes (Other)
  Sender: FDA-Public Use
  Company Number: FR-PFIZER INC-2015060779

PATIENT
  Age: 86 Year
  Sex: Male

DRUGS (4)
  1. PARACETAMOL B. BRAUN [Suspect]
     Active Substance: ACETAMINOPHEN
     Dosage: 10MG/ML, 3 G, QD
     Route: 042
     Dates: start: 20140920, end: 20140923
  2. LASILIX [Suspect]
     Active Substance: FUROSEMIDE
     Dosage: 1 VIAL, QD (20MG/2ML)
     Route: 042
     Dates: start: 20140921, end: 20140929
  3. NEFOPAM MYLAN [Suspect]
     Active Substance: NEFOPAM
     Dosage: 4 DF, QD (20 MG/2ML)
     Route: 042
     Dates: start: 20140928, end: 20140929
  4. EUPANTOL [Suspect]
     Active Substance: PANTOPRAZOLE SODIUM
     Dosage: 80 MG, 1X/DAY
     Route: 042
     Dates: start: 20140920, end: 20140925

REACTIONS (1)
  - Thrombosis [Recovered/Resolved]

NARRATIVE: CASE EVENT DATE: 20140930
